FAERS Safety Report 11841676 (Version 1)
Quarter: 2015Q4

REPORT INFORMATION
  Report Type: Spontaneous
  Country: US (occurrence: None)
  Receive Date: 20151215
  Receipt Date: 20151215
  Transmission Date: 20160305
  Serious: Yes (Other)
  Sender: FDA-Public Use
  Company Number: 002025588A

PATIENT
  Age: 64 Year
  Sex: Female

DRUGS (1)
  1. IT COSMETICS BYE BYE FOUNDATION SPF 50+ [Suspect]
     Active Substance: TITANIUM DIOXIDE\ZINC OXIDE
     Indication: PROPHYLAXIS AGAINST SOLAR RADIATION
     Dosage: DERMAL
     Route: 061
     Dates: start: 20151112

REACTIONS (4)
  - Application site paraesthesia [None]
  - Eye swelling [None]
  - Application site pruritus [None]
  - Application site swelling [None]

NARRATIVE: CASE EVENT DATE: 20151112
